FAERS Safety Report 16999697 (Version 1)
Quarter: 2019Q4

REPORT INFORMATION
  Report Type: Spontaneous
  Country: US (occurrence: US)
  Receive Date: 20191106
  Receipt Date: 20191106
  Transmission Date: 20200122
  Serious: Yes (Hospitalization)
  Sender: FDA-Public Use
  Company Number: US-MYLANLABS-2019M1105310

PATIENT
  Age: 63 Year
  Sex: Female

DRUGS (2)
  1. FOLIC ACID. [Concomitant]
     Active Substance: FOLIC ACID
     Dosage: RECEIVING FROM 9 YEARS
     Route: 042
  2. METHOTREXATE. [Suspect]
     Active Substance: METHOTREXATE
     Indication: RHEUMATOID ARTHRITIS
     Dosage: RECEIVING FROM 9 YEARS
     Route: 065

REACTIONS (3)
  - Pancytopenia [Recovered/Resolved]
  - Drug level increased [Unknown]
  - Skin necrosis [Recovered/Resolved]
